FAERS Safety Report 12666619 (Version 2)
Quarter: 2017Q1

REPORT INFORMATION
  Report Type: Spontaneous
  Country: US (occurrence: US)
  Receive Date: 20160819
  Receipt Date: 20170331
  Transmission Date: 20170428
  Serious: No
  Sender: FDA-Public Use
  Company Number: US-BIOGEN-2016BI00280583

PATIENT
  Sex: Female

DRUGS (1)
  1. AVONEX [Suspect]
     Active Substance: INTERFERON BETA-1A
     Indication: MULTIPLE SCLEROSIS
     Route: 065
     Dates: start: 20160304, end: 20160318

REACTIONS (5)
  - Dyspnoea [Unknown]
  - Depression [Unknown]
  - Micturition disorder [Unknown]
  - Insomnia [Unknown]
  - Anxiety [Recovered/Resolved]
